FAERS Safety Report 4786587-8 (Version None)
Quarter: 2005Q3

REPORT INFORMATION
  Report Type: 
  Country: None (occurrence: None)
  Receive Date: 20050927
  Receipt Date: 20050602
  Transmission Date: 20060218
  Serious: No
  Sender: FDA-Public Use
  Company Number: USA050699508

PATIENT
  Age: 13 Year
  Sex: Male
  Weight: 52 kg

DRUGS (4)
  1. STRATTERA [Suspect]
     Indication: ATTENTION DEFICIT/HYPERACTIVITY DISORDER
     Dosage: 60 MG DAY
     Dates: start: 20050524
  2. ADDERALL 10 [Concomitant]
  3. TRILEPTAL [Concomitant]
  4. ZOLOFT [Concomitant]

REACTIONS (1)
  - ABNORMAL DREAMS [None]
